FAERS Safety Report 7772534-3 (Version None)
Quarter: 2011Q3

REPORT INFORMATION
  Report Type: 
  Country: None (occurrence: None)
  Receive Date: 20110922
  Receipt Date: 20101129
  Transmission Date: 20111222
  Serious: No
  Sender: FDA-Public Use
  Company Number: US-ASTRAZENECA-2010SE56800

PATIENT
  Age: 49 Year
  Sex: Female

DRUGS (3)
  1. SEROQUEL XR [Suspect]
     Indication: INSOMNIA
     Route: 048
     Dates: start: 20090101
  2. SEROQUEL XR [Suspect]
     Indication: DEPRESSION
     Route: 048
     Dates: start: 20090101
  3. SEROQUEL XR [Suspect]
     Indication: CONVULSION
     Route: 048
     Dates: start: 20090101

REACTIONS (5)
  - NAUSEA [None]
  - INSOMNIA [None]
  - MALAISE [None]
  - ASTHENIA [None]
  - DRUG DOSE OMISSION [None]
